FAERS Safety Report 24262263 (Version 8)
Quarter: 2025Q1

REPORT INFORMATION
  Report Type: Spontaneous
  Country: JP (occurrence: JP)
  Receive Date: 20240829
  Receipt Date: 20250321
  Transmission Date: 20250409
  Serious: Yes (Other)
  Sender: AKEBIA THERAPEUTICS
  Company Number: JP-JAPAN TOBACCO INC.-JT2024JP000339

PATIENT
  Age: 34 Year
  Sex: Male
  Weight: 85 kg

DRUGS (30)
  1. FERRIC CITRATE ANHYDROUS [Suspect]
     Active Substance: FERRIC CITRATE ANHYDROUS
     Indication: Hyperphosphataemia
     Dosage: 500 MILLIGRAM, TID
     Route: 048
     Dates: start: 20240217
  2. FERRIC CITRATE ANHYDROUS [Suspect]
     Active Substance: FERRIC CITRATE ANHYDROUS
     Dosage: 500 MILLIGRAM, BID
     Route: 048
     Dates: start: 20240223
  3. ENARODUSTAT [Suspect]
     Active Substance: ENARODUSTAT
     Indication: Nephrogenic anaemia
     Dosage: 4 MILLIGRAM, QD
     Route: 048
     Dates: start: 20240208
  4. ENARODUSTAT [Suspect]
     Active Substance: ENARODUSTAT
     Dosage: 2 MILLIGRAM, QD
     Route: 048
     Dates: start: 20240805
  5. VALGANCICLOVIR HYDROCHLORIDE [Suspect]
     Active Substance: VALGANCICLOVIR HYDROCHLORIDE
     Indication: Prophylaxis
     Dosage: 450 MILLIGRAM, QD
     Route: 048
     Dates: start: 20240226, end: 20240908
  6. RITUXAN [Suspect]
     Active Substance: RITUXIMAB
     Indication: Prophylaxis
     Dosage: 500 MILLIGRAM, QD
     Route: 042
     Dates: start: 20240209, end: 20240209
  7. TACROLIMUS [Suspect]
     Active Substance: TACROLIMUS
     Indication: Prophylaxis
     Dosage: 8 MILLIGRAM, QD
     Route: 048
     Dates: start: 20240209
  8. CELLCEPT [Suspect]
     Active Substance: MYCOPHENOLATE MOFETIL
     Indication: Prophylaxis
     Dosage: 250 MILLIGRAM, QID
     Route: 048
     Dates: start: 20240209
  9. MEDROL [Suspect]
     Active Substance: METHYLPREDNISOLONE
     Indication: Prophylaxis
     Dosage: 20 MILLIGRAM, QD
     Route: 048
     Dates: start: 20240213
  10. CERTICAN [Suspect]
     Active Substance: EVEROLIMUS
     Indication: Prophylaxis
     Dosage: 0.75 MILLIGRAM, BID
     Route: 048
     Dates: start: 20240227
  11. ETHYL LOFLAZEPATE [Concomitant]
     Active Substance: ETHYL LOFLAZEPATE
     Indication: Neurosis
     Dosage: 1 MILLIGRAM, BID
     Route: 048
     Dates: end: 20240219
  12. TEGRETOL [Concomitant]
     Active Substance: CARBAMAZEPINE
     Indication: Epilepsy
     Dosage: 200 MILLIGRAM, QD
     Route: 048
  13. P TOL [SUCROFERRIC OXYHYDROXIDE] [Concomitant]
     Indication: Congenital cystic kidney disease
     Dosage: 250 MILLIGRAM, BID
     Route: 048
     Dates: end: 20240219
  14. P TOL [SUCROFERRIC OXYHYDROXIDE] [Concomitant]
     Indication: Hyperphosphataemia
  15. BIXALOMER [Concomitant]
     Active Substance: BIXALOMER
     Indication: Congenital cystic kidney disease
     Dosage: 500 MILLIGRAM, BID
     Route: 048
     Dates: end: 20240219
  16. BIXALOMER [Concomitant]
     Active Substance: BIXALOMER
     Indication: Hyperphosphataemia
  17. CALCIUM CARBONATE [Concomitant]
     Active Substance: CALCIUM CARBONATE
     Indication: Congenital cystic kidney disease
     Dosage: 500 MILLIGRAM, BID
     Route: 048
     Dates: end: 20240219
  18. CALCIUM CARBONATE [Concomitant]
     Active Substance: CALCIUM CARBONATE
     Indication: Hyperphosphataemia
  19. BIAPENEM [Concomitant]
     Active Substance: BIAPENEM
     Indication: Dyslipidaemia
     Dosage: 2 GRAM, QD
     Route: 048
     Dates: end: 20240219
  20. ASPIRIN [Concomitant]
     Active Substance: ASPIRIN
     Indication: Prophylaxis
     Dosage: 100 MILLIGRAM, QD
     Route: 048
     Dates: end: 20240219
  21. FEBUXOSTAT [Concomitant]
     Active Substance: FEBUXOSTAT
     Indication: Hyperuricaemia
     Dosage: 20 MILLIGRAM, QD
     Route: 048
     Dates: end: 20240219
  22. BIOFERMIN [BACILLUS SUBTILIS;ENTEROCOCCUS FAECALIS] [Concomitant]
     Indication: Diarrhoea
     Dosage: 1 GRAM, TID
     Route: 048
     Dates: end: 20240219
  23. ELOBIXIBAT [Concomitant]
     Active Substance: ELOBIXIBAT
     Indication: Constipation
     Dosage: 5 MILLIGRAM, BID
     Route: 048
     Dates: start: 20240212, end: 20240219
  24. DAYVIGO [Concomitant]
     Active Substance: LEMBOREXANT
     Indication: Insomnia
     Route: 048
     Dates: start: 20240213, end: 20240318
  25. RISPERIDONE [Concomitant]
     Active Substance: RISPERIDONE
     Indication: Restlessness
     Route: 048
     Dates: start: 20240213, end: 20240318
  26. LANSOPRAZOLE [Concomitant]
     Active Substance: LANSOPRAZOLE
     Indication: Prophylaxis
     Dosage: 20 MILLIGRAM, QD
     Route: 048
     Dates: start: 20240213
  27. SULFAMETHOXAZOLE\TRIMETHOPRIM [Concomitant]
     Active Substance: SULFAMETHOXAZOLE\TRIMETHOPRIM
     Indication: Prophylaxis
     Dosage: 0.5 DOSAGE FORM, QD
     Route: 048
     Dates: start: 20240226
  28. CEFDITOREN PIVOXIL [Concomitant]
     Active Substance: CEFDITOREN PIVOXIL
     Indication: Cystitis
     Dosage: 100 MILLIGRAM, TID
     Route: 048
     Dates: start: 20240415, end: 20240422
  29. LENOGRASTIM [Concomitant]
     Active Substance: LENOGRASTIM
     Indication: Neutropenia
     Dosage: 150 MICROGRAM, QD FOR A TOTAL OF 3 DOSES
     Route: 042
     Dates: start: 20240315, end: 20240430
  30. VIBEGRON [Concomitant]
     Active Substance: VIBEGRON
     Indication: Hypertonic bladder
     Dosage: 50 MILLIGRAM, QD
     Route: 048
     Dates: start: 20240419, end: 20240609

REACTIONS (12)
  - Neutropenia [Recovered/Resolved]
  - Polyomavirus-associated nephropathy [Not Recovered/Not Resolved]
  - Constipation [Recovered/Resolved]
  - Insomnia [Recovered/Resolved]
  - Restlessness [Recovered/Resolved]
  - Cystitis [Recovered/Resolved]
  - Hypertonic bladder [Recovered/Resolved]
  - Adenovirus infection [Recovering/Resolving]
  - Upper respiratory tract inflammation [Recovered/Resolved]
  - Hepatic function abnormal [Recovered/Resolved]
  - Bronchitis [Recovered/Resolved]
  - Pharyngitis [Recovered/Resolved]

NARRATIVE: CASE EVENT DATE: 20240212
